FAERS Safety Report 7538962-6 (Version None)
Quarter: 2011Q2

REPORT INFORMATION
  Report Type: 
  Country: None (occurrence: None)
  Receive Date: 20110610
  Receipt Date: 20110526
  Transmission Date: 20111010
  Serious: Yes (Other)
  Sender: FDA-Public Use
  Company Number: US-JNJCP-30000055974

PATIENT
  Sex: Male

DRUGS (1)
  1. C+C ACNE TREATMENT UNSPECIFIED USA CCATUNUS [Suspect]
     Indication: ACNE
     Route: 061

REACTIONS (1)
  - CROHN'S DISEASE [None]
